FAERS Safety Report 8581021 (Version 2)
Quarter: 2012Q4

REPORT INFORMATION
  Report Type: 
  Country: US (occurrence: US)
  Receive Date: 20120525
  Receipt Date: 20121128
  Transmission Date: 20130627
  Serious: Yes (Hospitalization)
  Sender: FDA-Public Use
  Company Number: US-ELI_LILLY_AND_COMPANY-US201111005151

PATIENT
  Age: 81 Year
  Sex: Female

DRUGS (3)
  1. FORTEO [Suspect]
     Dosage: 20 ug, qd
     Route: 058
     Dates: start: 201108
  2. FORTEO [Suspect]
     Dosage: 20 ug, qd
     Route: 058
  3. FORTEO [Suspect]
     Dosage: 20 ug, qd
     Route: 058

REACTIONS (2)
  - Gallbladder disorder [Unknown]
  - Medication error [Unknown]
